FAERS Safety Report 21811727 (Version 3)
Quarter: 2023Q1

REPORT INFORMATION
  Report Type: Spontaneous
  Country: US (occurrence: US)
  Receive Date: 20230103
  Receipt Date: 20230113
  Transmission Date: 20230417
  Serious: No
  Sender: FDA-Public Use
  Company Number: US-BRISTOL-MYERS SQUIBB COMPANY-2022-155082

PATIENT
  Age: 73 Year
  Sex: Female
  Weight: 105.91 kg

DRUGS (8)
  1. ELIQUIS [Suspect]
     Active Substance: APIXABAN
     Dosage: START DATE: LITTLE OVER A YEAR AGO. BLOOD THINNER
     Route: 048
  2. VFEND [Suspect]
     Active Substance: VORICONAZOLE
     Indication: Aspergillus infection
     Dosage: TWO 50MG TABLETS, ONE 200MG TABLET, TOTAL DOSE OF 300MG, TWICE A DAY
     Route: 048
     Dates: start: 20221129, end: 20221213
  3. VFEND [Suspect]
     Active Substance: VORICONAZOLE
     Dosage: TWO 50MG TABLETS, ONE 200MG TABLET, TOTAL DOSE OF 300MG, TWICE A DAY
     Route: 048
     Dates: start: 20221129, end: 20221213
  4. ATORVASTATIN [Concomitant]
     Active Substance: ATORVASTATIN
     Indication: Blood cholesterol
     Dosage: 20MG ONCE A DAY BY MOUTH
     Route: 048
  5. METOPROLOL SUCCINATE [Concomitant]
     Active Substance: METOPROLOL SUCCINATE
     Indication: Heart rate increased
     Dosage: 25 MG, 2X/DAY (STARTED 20 OR 25 YEARS AGO OR MORE)
     Route: 048
  6. SPIROLAC [Concomitant]
     Indication: Diuretic therapy
     Dosage: 1.25 MG, 1X/DAY (STARTED A YEAR AGO)
     Route: 048
  7. TORSEMIDE [Concomitant]
     Active Substance: TORSEMIDE
     Indication: Diuretic therapy
     Dosage: STARTED LAST MAY
     Route: 048
  8. ACETAMINOPHEN [Concomitant]
     Active Substance: ACETAMINOPHEN
     Indication: Arthritis
     Dosage: 500MG TABLET, 1000MG THREE TIMES A DAY BY MOUTH
     Route: 048
     Dates: start: 2007

REACTIONS (8)
  - Constipation [Not Recovered/Not Resolved]
  - Fatigue [Not Recovered/Not Resolved]
  - Drug level increased [Unknown]
  - Pain [Not Recovered/Not Resolved]
  - Ocular discomfort [Unknown]
  - Diarrhoea [Unknown]
  - Lactose intolerance [Unknown]
  - Aspartate aminotransferase increased [Unknown]

NARRATIVE: CASE EVENT DATE: 20221201
